FAERS Safety Report 22068069 (Version 1)
Quarter: 2023Q1

REPORT INFORMATION
  Report Type: Report from Study
  Country: DE (occurrence: DE)
  Receive Date: 20230307
  Receipt Date: 20230307
  Transmission Date: 20230418
  Serious: Yes (Life-Threatening, Hospitalization)
  Sender: FDA-Public Use
  Company Number: DE-JNJFOC-20221027712

PATIENT
  Sex: Male
  Weight: 80 kg

DRUGS (19)
  1. IBRUTINIB [Suspect]
     Active Substance: IBRUTINIB
     Indication: Waldenstrom^s macroglobulinaemia
     Route: 048
     Dates: start: 20211112
  2. CARFILZOMIB [Concomitant]
     Active Substance: CARFILZOMIB
     Indication: Waldenstrom^s macroglobulinaemia
     Dosage: D8
     Route: 042
     Dates: start: 20220412, end: 20220607
  3. CARFILZOMIB [Concomitant]
     Active Substance: CARFILZOMIB
     Indication: Waldenstrom^s macroglobulinaemia
     Dosage: D15
     Route: 042
     Dates: start: 20220614, end: 20221004
  4. CARFILZOMIB [Concomitant]
     Active Substance: CARFILZOMIB
     Indication: Waldenstrom^s macroglobulinaemia
     Dosage: D1
     Route: 042
     Dates: start: 20211112, end: 20220405
  5. MAGNESIUM CARBONATE [Concomitant]
     Active Substance: MAGNESIUM CARBONATE
     Indication: Prophylaxis
     Dosage: 1 BAG; 1-0-0
     Route: 048
  6. LANSOPRAZOLE [Concomitant]
     Active Substance: LANSOPRAZOLE
     Indication: Eosinophilic oesophagitis
     Dosage: 1-0-0
     Route: 048
  7. ZOPICLONE [Concomitant]
     Active Substance: ZOPICLONE
     Indication: Sleep disorder
     Dosage: 0-0-0-1
     Route: 048
     Dates: start: 20220111
  8. AMLODIPINE [Concomitant]
     Active Substance: AMLODIPINE BESYLATE
     Indication: Hypertension
     Dosage: 0-0-1
     Route: 048
     Dates: start: 20220214
  9. FERROUS GLUCONATE [Concomitant]
     Active Substance: FERROUS GLUCONATE
     Indication: Iron deficiency
     Dosage: 1-0-0
     Route: 048
     Dates: start: 20220419
  10. VALACYCLOVIR [Concomitant]
     Active Substance: VALACYCLOVIR HYDROCHLORIDE
     Indication: Prophylaxis
     Dosage: 1-0-1
     Route: 048
     Dates: start: 20211112
  11. SIMVASTATIN [Concomitant]
     Active Substance: SIMVASTATIN
     Indication: Hypercholesterolaemia
     Dosage: 0-0-1
     Route: 048
  12. CHOLECALCIFEROL [Concomitant]
     Active Substance: CHOLECALCIFEROL
     Indication: Prophylaxis
     Dosage: 1000 IE; 1-0-0
     Route: 048
  13. METFORMIN [Concomitant]
     Active Substance: METFORMIN HYDROCHLORIDE
     Indication: Type 2 diabetes mellitus
     Dosage: 1-1-1
     Route: 048
  14. CANDESARTAN [Concomitant]
     Active Substance: CANDESARTAN
     Indication: Hypertension
     Dosage: 1-0-1
     Route: 048
     Dates: start: 20210126
  15. DESLORATADINE [Concomitant]
     Active Substance: DESLORATADINE
     Indication: Rhinitis allergic
     Dosage: 1-0-0
     Route: 048
  16. TORSEMIDE [Concomitant]
     Active Substance: TORSEMIDE
     Indication: Oedema peripheral
     Dosage: 1-0-0
     Route: 048
     Dates: start: 20220419
  17. BUDESONIDE [Concomitant]
     Active Substance: BUDESONIDE
     Indication: Eosinophilic oesophagitis
     Dosage: 0-0-1
     Route: 048
     Dates: start: 1996
  18. BUDESONIDE [Concomitant]
     Active Substance: BUDESONIDE
     Indication: Eosinophilic oesophagitis
     Dosage: 0-0-1
     Route: 048
     Dates: start: 1996
  19. ASPIRIN [Concomitant]
     Active Substance: ASPIRIN
     Indication: Prophylaxis
     Dosage: 1-0-0
     Route: 048
     Dates: end: 20221014

REACTIONS (1)
  - Atrial fibrillation [Recovered/Resolved]

NARRATIVE: CASE EVENT DATE: 20221013
